FAERS Safety Report 11675256 (Version 1)
Quarter: 2015Q4

REPORT INFORMATION
  Report Type: Spontaneous
  Country: US (occurrence: US)
  Receive Date: 20151027
  Receipt Date: 20151027
  Transmission Date: 20160304
  Serious: No
  Sender: FDA-Public Use
  Company Number: US-ELI_LILLY_AND_COMPANY-US201008008519

PATIENT
  Sex: Female

DRUGS (3)
  1. CENTRUM /00554501/ [Concomitant]
     Active Substance: VITAMINS
  2. CALCIUM CARBONATE + VITAMIN D [Concomitant]
     Dosage: 600 MG, 2/D
  3. FORTEO [Suspect]
     Active Substance: TERIPARATIDE
     Indication: BONE DISORDER
     Dosage: 20 UG, DAILY (1/D)

REACTIONS (2)
  - Muscle spasms [Unknown]
  - Blood 1,25-dihydroxycholecalciferol decreased [Unknown]
